FAERS Safety Report 24437547 (Version 1)
Quarter: 2024Q4

REPORT INFORMATION
  Report Type: Spontaneous
  Country: DK (occurrence: DK)
  Receive Date: 20241015
  Receipt Date: 20241015
  Transmission Date: 20250115
  Serious: Yes (Death, Hospitalization, Other)
  Sender: AMGEN
  Company Number: None

PATIENT
  Age: 80 Year
  Sex: Female
  Weight: 75 kg

DRUGS (1)
  1. KYPROLIS [Suspect]
     Active Substance: CARFILZOMIB
     Indication: Plasma cell myeloma
     Dosage: DOSAGE: 56MG/M2 ADMINISTERED AT UNKNOWN INTERVAL.
     Route: 040
     Dates: start: 20240725, end: 20240905

REACTIONS (5)
  - Respiratory failure [Fatal]
  - Cor pulmonale acute [Fatal]
  - Respiration abnormal [Unknown]
  - Pulmonary oedema [Unknown]
  - Pleural effusion [Unknown]

NARRATIVE: CASE EVENT DATE: 20240901
